FAERS Safety Report 16057847 (Version 1)
Quarter: 2019Q1

REPORT INFORMATION
  Report Type: Spontaneous
  Country: GB (occurrence: GB)
  Receive Date: 20190311
  Receipt Date: 20190311
  Transmission Date: 20190418
  Serious: Yes (Disabling, Other)
  Sender: FDA-Public Use
  Company Number: GB-TEVA-2019-GB-1021132

PATIENT
  Age: 71 Year
  Sex: Female
  Weight: 50.8 kg

DRUGS (9)
  1. SIMVASTATIN. [Concomitant]
     Active Substance: SIMVASTATIN
  2. CIPROFLOXACIN. [Suspect]
     Active Substance: CIPROFLOXACIN
     Indication: URINARY TRACT INFECTION
     Route: 048
     Dates: start: 20181221, end: 20181230
  3. DIPYRIDAMOLE. [Concomitant]
     Active Substance: DIPYRIDAMOLE
  4. ACETYLSALICYLIC ACID [Concomitant]
     Active Substance: ASPIRIN
  5. PARACETAMOL [Concomitant]
     Active Substance: ACETAMINOPHEN
  6. CALCICHEW [Concomitant]
     Active Substance: CALCIUM CARBONATE
  7. LISINOPRIL. [Concomitant]
     Active Substance: LISINOPRIL
  8. LOSEC [Concomitant]
     Active Substance: OMEPRAZOLE
  9. CEFALEXIN [Concomitant]
     Active Substance: CEPHALEXIN

REACTIONS (5)
  - Arthralgia [Not Recovered/Not Resolved]
  - Muscle spasms [Not Recovered/Not Resolved]
  - Joint swelling [Not Recovered/Not Resolved]
  - Tendonitis [Not Recovered/Not Resolved]
  - Myalgia [Not Recovered/Not Resolved]

NARRATIVE: CASE EVENT DATE: 201901
